FAERS Safety Report 25444168 (Version 3)
Quarter: 2025Q4

REPORT INFORMATION
  Report Type: Spontaneous
  Country: US (occurrence: None)
  Receive Date: 20250617
  Receipt Date: 20251027
  Transmission Date: 20260118
  Serious: Yes (Other)
  Sender: UCB
  Company Number: US-UCBSA-2025021877

PATIENT
  Age: 60 Year
  Weight: 136.05 kg

DRUGS (1)
  1. BIMZELX [Suspect]
     Active Substance: BIMEKIZUMAB-BKZX
     Indication: Psoriasis
     Dosage: 320 MILLIGRAM, EV 4 WEEKS

REACTIONS (6)
  - Cerebrovascular accident [Unknown]
  - Pruritus [Unknown]
  - Injection site pain [Unknown]
  - Angiopathy [Unknown]
  - Ulcer [Unknown]
  - Localised infection [Unknown]
